FAERS Safety Report 8210175-4 (Version None)
Quarter: 2012Q1

REPORT INFORMATION
  Report Type: 
  Country: None (occurrence: None)
  Receive Date: 20120314
  Receipt Date: 20120110
  Transmission Date: 20120608
  Serious: No
  Sender: FDA-Public Use
  Company Number: US-ASTRAZENECA-2009UW15404

PATIENT
  Age: 79 Year
  Sex: Female

DRUGS (6)
  1. TOPROL-XL [Suspect]
     Route: 048
     Dates: start: 20040101
  2. PLAVIX [Concomitant]
     Dates: start: 20040101
  3. LIPITOR [Concomitant]
     Dates: start: 20080101
  4. TRAVATAN [Concomitant]
     Dates: start: 20080101
  5. NVOLIDE [Concomitant]
     Dosage: 300 MG / 12.5
     Dates: start: 20040101
  6. ASPIRIN [Concomitant]
     Dates: start: 20040101

REACTIONS (2)
  - OEDEMA PERIPHERAL [None]
  - OSTEOARTHRITIS [None]
